FAERS Safety Report 7982647-9 (Version None)
Quarter: 2011Q4

REPORT INFORMATION
  Report Type: 
  Country: None (occurrence: None)
  Receive Date: 20111215
  Receipt Date: 20111206
  Transmission Date: 20120403
  Serious: Yes (Hospitalization)
  Sender: FDA-Public Use
  Company Number: US-ROCHE-1021962

PATIENT
  Sex: Female
  Weight: 49.486 kg

DRUGS (2)
  1. XELODA [Suspect]
     Indication: NEUROENDOCRINE TUMOUR
     Route: 048
     Dates: start: 20110609, end: 20111012
  2. SANDOSTATIN [Concomitant]
     Dates: start: 20111021

REACTIONS (5)
  - DIARRHOEA [None]
  - INTESTINAL OBSTRUCTION [None]
  - ABDOMINAL ADHESIONS [None]
  - FLATULENCE [None]
  - VOMITING [None]
